FAERS Safety Report 19981351 (Version 1)
Quarter: 2021Q4

REPORT INFORMATION
  Report Type: Spontaneous
  Country: US (occurrence: US)
  Receive Date: 20211022
  Receipt Date: 20211022
  Transmission Date: 20220303
  Serious: No
  Sender: FDA-Public Use
  Company Number: US-TAKEDA-2021TJP104886

PATIENT
  Age: 25 Year
  Sex: Male

DRUGS (4)
  1. TEDUGLUTIDE [Suspect]
     Active Substance: TEDUGLUTIDE
     Indication: Adenomatous polyposis coli
     Dosage: 0.05 MILLIGRAM/KILOGRAM
     Route: 065
  2. TEDUGLUTIDE [Suspect]
     Active Substance: TEDUGLUTIDE
     Indication: Adenomatous polyposis coli
     Dosage: 0.05 MILLIGRAM/KILOGRAM
     Route: 065
  3. TEDUGLUTIDE [Suspect]
     Active Substance: TEDUGLUTIDE
     Indication: Adenomatous polyposis coli
     Dosage: 0.05 MILLIGRAM/KILOGRAM
     Route: 065
  4. TEDUGLUTIDE [Suspect]
     Active Substance: TEDUGLUTIDE
     Indication: Adenomatous polyposis coli
     Dosage: 0.05 MILLIGRAM/KILOGRAM
     Route: 065

REACTIONS (4)
  - Malabsorption [Unknown]
  - Gastrointestinal tract adenoma [Unknown]
  - Gastrointestinal tract adenoma [Unknown]
  - Adenoma benign [Unknown]
